FAERS Safety Report 23831498 (Version 1)
Quarter: 2024Q2

REPORT INFORMATION
  Report Type: Spontaneous
  Country: US (occurrence: None)
  Receive Date: 20240507
  Receipt Date: 20240507
  Transmission Date: 20240716
  Serious: Yes (Hospitalization)
  Sender: FDA-Public Use
  Company Number: None

PATIENT
  Age: 96 Year
  Sex: Male
  Weight: 75.3 kg

DRUGS (2)
  1. FUROSEMIDE [Suspect]
     Active Substance: FUROSEMIDE
     Indication: Peripheral swelling
     Dosage: 20 MG EVERY DAY PO
     Route: 048
     Dates: start: 20220512
  2. ISOSORBIDE DINITRATE [Suspect]
     Active Substance: ISOSORBIDE DINITRATE
     Dosage: 10 MG TID PO
     Route: 048
     Dates: start: 20220510

REACTIONS (7)
  - Blood creatinine increased [None]
  - Hypotension [None]
  - Blood lactic acid increased [None]
  - Unresponsive to stimuli [None]
  - Acute kidney injury [None]
  - Weight increased [None]
  - Oedema [None]

NARRATIVE: CASE EVENT DATE: 20220731
